FAERS Safety Report 9517526 (Version 1)
Quarter: 2013Q3

REPORT INFORMATION
  Report Type: Report from Study
  Country: US (occurrence: US)
  Receive Date: 20130911
  Receipt Date: 20130911
  Transmission Date: 20140515
  Serious: Yes (Hospitalization)
  Sender: FDA-Public Use
  Company Number: US-MILLENNIUM PHARMACEUTICALS, INC.-2013MPI000235

PATIENT
  Age: 79 Year
  Sex: Female

DRUGS (8)
  1. VELCADE [Suspect]
     Indication: PLASMA CELL MYELOMA
     Dosage: 1.3 MG/M2, CYCLIC
     Dates: start: 20130826
  2. DEXAMETHASONE [Suspect]
     Indication: PLASMA CELL MYELOMA
     Dosage: 20 MG, CYCLIC
     Dates: start: 20130826
  3. LENALIDOMIDE [Suspect]
     Indication: PLASMA CELL MYELOMA
     Dosage: 15 MG, CYCLIC
     Dates: start: 20130830
  4. ACYCLOVIR                          /00587301/ [Concomitant]
     Dosage: 400 MG, BID
     Route: 048
  5. ASPIRIN [Concomitant]
     Dosage: 325 MG, QD
     Route: 048
  6. MIRTAZAPINE [Concomitant]
     Dosage: 30 MG, QD
     Route: 048
  7. PRILOSEC                           /00661201/ [Concomitant]
     Dosage: 20 MG, QD
     Route: 048
  8. ZOLOFT                             /01011401/ [Concomitant]
     Dosage: 50 MG, QD
     Route: 048

REACTIONS (6)
  - Fungal skin infection [Unknown]
  - Ageusia [Unknown]
  - Vomiting [Unknown]
  - Pancytopenia [Unknown]
  - Constipation [Unknown]
  - Decreased appetite [Unknown]
